FAERS Safety Report 4834178-2 (Version None)
Quarter: 2005Q4

REPORT INFORMATION
  Report Type: 
  Country: None (occurrence: None)
  Receive Date: 20051118
  Receipt Date: 20051118
  Transmission Date: 20060501
  Serious: Yes (Other)
  Sender: FDA-Public Use
  Company Number: None

PATIENT
  Sex: Female
  Weight: 73.9363 kg

DRUGS (1)
  1. ALLEGRA [Suspect]
     Dosage: 180 MG QD

REACTIONS (4)
  - COORDINATION ABNORMAL [None]
  - DISEASE RECURRENCE [None]
  - DIZZINESS [None]
  - DRUG DOSE OMISSION [None]
